FAERS Safety Report 22341056 (Version 1)
Quarter: 2023Q2

REPORT INFORMATION
  Report Type: Spontaneous
  Country: US (occurrence: None)
  Receive Date: 20230518
  Receipt Date: 20230518
  Transmission Date: 20230722
  Serious: Yes (Hospitalization)
  Sender: FDA-Public Use
  Company Number: None

PATIENT
  Sex: Female
  Weight: 69.85 kg

DRUGS (12)
  1. COTELLIC [Suspect]
     Active Substance: COBIMETINIB
     Indication: Malignant melanoma
     Dosage: FREQUENCY : DAILY;?
     Route: 048
     Dates: start: 202305
  2. ZELBORAF [Suspect]
     Active Substance: VEMURAFENIB
     Indication: Malignant melanoma
     Dosage: FREQUENCY : TWICE A DAY;?
     Route: 048
     Dates: start: 202305
  3. ATIVAN [Concomitant]
  4. COTELLIC [Concomitant]
  5. KEPPRA [Concomitant]
  6. MOVANTIK [Concomitant]
     Active Substance: NALOXEGOL OXALATE
  7. MUPIROCIN [Concomitant]
     Active Substance: MUPIROCIN
  8. OXYCODONE [Concomitant]
     Active Substance: OXYCODONE
  9. PROTONIX [Concomitant]
  10. SENNA [Concomitant]
  11. TRULANCE [Concomitant]
  12. ZOFRAN [Concomitant]

REACTIONS (4)
  - Abdominal pain upper [None]
  - Headache [None]
  - Brain oedema [None]
  - Seizure [None]
